FAERS Safety Report 26097621 (Version 3)
Quarter: 2025Q4

REPORT INFORMATION
  Report Type: Report from Study
  Country: US (occurrence: US)
  Receive Date: 20251127
  Receipt Date: 20251231
  Transmission Date: 20260117
  Serious: Yes (Other)
  Sender: MALLINCKRODT
  Company Number: US-MALLINCKRODT-MNK202507230

PATIENT
  Age: 38 Year
  Sex: Female

DRUGS (1)
  1. CORTICOTROPIN [Suspect]
     Active Substance: CORTICOTROPIN
     Indication: Rheumatoid arthritis
     Dosage: 80 UNITS
     Dates: start: 20251105

REACTIONS (9)
  - Rheumatoid arthritis [Not Recovered/Not Resolved]
  - Restlessness [Unknown]
  - Blood glucose decreased [Recovered/Resolved]
  - Chills [Unknown]
  - Impaired quality of life [Unknown]
  - Lip swelling [Unknown]
  - Fatigue [Not Recovered/Not Resolved]
  - Insomnia [Unknown]
  - Nasopharyngitis [Unknown]

NARRATIVE: CASE EVENT DATE: 20250101
